FAERS Safety Report 4284719-1 (Version None)
Quarter: 2004Q1

REPORT INFORMATION
  Report Type: 
  Country: None (occurrence: None)
  Receive Date: 20040203
  Receipt Date: 20040119
  Transmission Date: 20041129
  Serious: Yes (Death)
  Sender: FDA-Public Use
  Company Number: 2004S1000159

PATIENT
  Age: 82 Year
  Sex: Male

DRUGS (2)
  1. CLOZAPINE [Suspect]
     Indication: PARKINSON'S DISEASE
     Dosage: 25 MG QAM AND 12.5 MG Q HS ORAL
     Route: 048
     Dates: start: 20001001
  2. CARBIDOPA AND LEVODOPA [Concomitant]

REACTIONS (1)
  - PNEUMONIA [None]
